FAERS Safety Report 4811443-6 (Version None)
Quarter: 2005Q4

REPORT INFORMATION
  Report Type: 
  Country: None (occurrence: None)
  Receive Date: 20051026
  Receipt Date: 20051026
  Transmission Date: 20060501
  Serious: Yes (Disabling)
  Sender: FDA-Public Use
  Company Number: None

PATIENT
  Age: 57 Year
  Sex: Female
  Weight: 62.1428 kg

DRUGS (1)
  1. LOVASTATIN [Suspect]
     Indication: BLOOD CHOLESTEROL INCREASED
     Dosage: 1 DAILY

REACTIONS (5)
  - ARTHRALGIA [None]
  - DYSPHAGIA [None]
  - INTERVERTEBRAL DISC PROTRUSION [None]
  - MUSCLE CONTRACTIONS INVOLUNTARY [None]
  - NEUROPATHY PERIPHERAL [None]
